FAERS Safety Report 4715185-7 (Version None)
Quarter: 2005Q3

REPORT INFORMATION
  Report Type: 
  Country: None (occurrence: None)
  Receive Date: 20050715
  Receipt Date: 20050104
  Transmission Date: 20060218
  Serious: Yes (Other)
  Sender: FDA-Public Use
  Company Number: US-ROCHE-391639

PATIENT
  Age: 17 Year
  Sex: Female

DRUGS (6)
  1. ACCUTANE [Suspect]
     Indication: ACNE
     Route: 048
     Dates: start: 20040802, end: 20041015
  2. ACCUTANE [Suspect]
     Route: 048
     Dates: start: 20041015, end: 20041015
  3. ACCUTANE [Suspect]
     Route: 048
     Dates: start: 20040227, end: 20040331
  4. AMNESTEEM [Suspect]
     Indication: ACNE
     Route: 065
     Dates: start: 20040102, end: 20040227
  5. AMNESTEEM [Suspect]
     Route: 065
     Dates: start: 20040331
  6. ETHINYLESTRADIOL/NORGESTIMATE [Concomitant]
     Dosage: DRUG REPORTED AS: SPRINTEC/ETHINYLESTRADIOL AND NORGESTIMATE.
     Route: 048

REACTIONS (8)
  - ABNORMAL BEHAVIOUR [None]
  - AGITATION [None]
  - DEPRESSION [None]
  - IMPAIRED SELF-CARE [None]
  - IRRITABILITY [None]
  - MOOD SWINGS [None]
  - SOCIAL AVOIDANT BEHAVIOUR [None]
  - SUICIDAL IDEATION [None]
